FAERS Safety Report 9795416 (Version 3)
Quarter: 2014Q2

REPORT INFORMATION
  Report Type: Spontaneous
  Country: JP (occurrence: JP)
  Receive Date: 20140103
  Receipt Date: 20140620
  Transmission Date: 20141212
  Serious: Yes (Death, Life-Threatening, Other)
  Sender: FDA-Public Use
  Company Number: JP-TAKEDA-2013TEU003881

PATIENT
  Age: 71 Year
  Sex: Male

DRUGS (8)
  1. TACHOSIL [Suspect]
     Indication: HAEMORRHAGE PROPHYLAXIS
     Dosage: 1 SHEET OF REGULAR SIZE
     Route: 003
     Dates: start: 20130820
  2. FLUMARIN                           /00780601/ [Concomitant]
     Indication: HEPATIC CANCER
     Dosage: 1 G, BID
     Route: 042
     Dates: start: 20130820, end: 20130821
  3. PANTOL                             /00178901/ [Concomitant]
     Indication: HEPATIC CANCER
     Dosage: 500 MG, TID
     Dates: start: 20130820, end: 20130823
  4. BOLHEAL [Concomitant]
     Indication: HAEMOSTASIS
     Dosage: UNK
     Dates: start: 20130820, end: 20130820
  5. RED CELL CONCENTRATED [Concomitant]
  6. PLATELETS, CONCENTRATED [Concomitant]
  7. PLASMA, FRESH FROZEN [Concomitant]
  8. ALBUMIN BIOPHARMA [Concomitant]

REACTIONS (5)
  - Hepatic failure [Fatal]
  - Hepatic infection [Fatal]
  - Disseminated intravascular coagulation [Fatal]
  - Acute respiratory distress syndrome [Fatal]
  - Renal failure acute [Not Recovered/Not Resolved]
